FAERS Safety Report 6920886-6 (Version None)
Quarter: 2010Q3

REPORT INFORMATION
  Report Type: 
  Country: None (occurrence: None)
  Receive Date: 20100812
  Receipt Date: 20100809
  Transmission Date: 20110219
  Serious: Yes (Other)
  Sender: FDA-Public Use
  Company Number: PT-ROXANE LABORATORIES, INC.-2010-RO-00998RO

PATIENT
  Age: 49 Year
  Sex: Male
  Weight: 140 kg

DRUGS (3)
  1. MORPHINE [Suspect]
     Indication: NEURALGIA
  2. LIDOCAINE [Suspect]
     Indication: NEURALGIA
  3. INSULIN [Suspect]
     Indication: DIABETES MELLITUS INADEQUATE CONTROL
     Dosage: 1500 U

REACTIONS (7)
  - ABDOMINAL DISTENSION [None]
  - CONSTIPATION [None]
  - DECREASED APPETITE [None]
  - HYPERCHLORHYDRIA [None]
  - NAUSEA [None]
  - QUALITY OF LIFE DECREASED [None]
  - SUICIDAL IDEATION [None]
